FAERS Safety Report 24256263 (Version 1)
Quarter: 2024Q3

REPORT INFORMATION
  Report Type: Report from Study
  Country: US (occurrence: US)
  Receive Date: 20240828
  Receipt Date: 20240828
  Transmission Date: 20241017
  Serious: Yes (Other)
  Sender: ABBVIE
  Company Number: US-ABBVIE-5888895

PATIENT
  Age: 59 Year
  Sex: Female

DRUGS (1)
  1. HUMIRA [Suspect]
     Active Substance: ADALIMUMAB
     Indication: Rheumatoid arthritis
     Route: 058
     Dates: start: 20240806

REACTIONS (7)
  - Intentional self-injury [Unknown]
  - Haemorrhage [Recovered/Resolved]
  - Wound complication [Unknown]
  - Skin indentation [Unknown]
  - Peripheral swelling [Not Recovered/Not Resolved]
  - Impaired healing [Not Recovered/Not Resolved]
  - Blood viscosity decreased [Unknown]

NARRATIVE: CASE EVENT DATE: 20240801
